FAERS Safety Report 15054021 (Version 1)
Quarter: 2018Q2

REPORT INFORMATION
  Report Type: Report from Study
  Country: SI (occurrence: SI)
  Receive Date: 20180622
  Receipt Date: 20180622
  Transmission Date: 20180711
  Serious: Yes (Hospitalization)
  Sender: FDA-Public Use
  Company Number: PHHY2018SI026242

PATIENT
  Age: 80 Year

DRUGS (2)
  1. FUROSEMIDE. [Suspect]
     Active Substance: FUROSEMIDE
     Indication: CARDIAC DISORDER
     Dosage: 40 MG, 1X
     Route: 065
  2. METHYL-DIGOXIN [Concomitant]
     Indication: CARDIAC DISORDER
     Dosage: 0.5 DF (1/2 TABLET)
     Route: 065

REACTIONS (8)
  - Type 2 diabetes mellitus [Unknown]
  - Blood pressure systolic increased [Unknown]
  - Hypertension [Unknown]
  - Heart rate increased [Unknown]
  - Atrial fibrillation [Unknown]
  - Chronic obstructive pulmonary disease [Unknown]
  - Cardiac failure [Unknown]
  - Blood pressure decreased [Unknown]
